FAERS Safety Report 9889070 (Version 1)
Quarter: 2014Q1

REPORT INFORMATION
  Report Type: Spontaneous
  Country: US (occurrence: None)
  Receive Date: 20140207
  Receipt Date: 20140207
  Transmission Date: 20141002
  Serious: Yes (Hospitalization)
  Sender: FDA-Public Use
  Company Number: 2014US010292

PATIENT
  Age: 60 Year
  Sex: Male
  Weight: 68 kg

DRUGS (4)
  1. ALOXI [Suspect]
     Indication: PROPHYLAXIS OF NAUSEA AND VOMITING
     Dosage: 0.25 MG, Q2WK, INTRAVENOUS
     Route: 042
     Dates: start: 20131022
  2. OXALIPLATIN (OXALIPLATIN) [Concomitant]
  3. FUSILEV (LEVOLEUCOVORIN) [Concomitant]
  4. 5 FU (FLUOROURACIL) [Concomitant]

REACTIONS (7)
  - Febrile neutropenia [None]
  - Pneumonia [None]
  - Hepatic enzyme increased [None]
  - Abdominal pain [None]
  - Respiratory distress [None]
  - Refusal of treatment by patient [None]
  - General physical health deterioration [None]
